FAERS Safety Report 21406995 (Version 1)
Quarter: 2022Q4

REPORT INFORMATION
  Report Type: Other
  Country: KR (occurrence: KR)
  Receive Date: 20221004
  Receipt Date: 20221004
  Transmission Date: 20230112
  Serious: Yes (Other)
  Sender: FDA-Public Use
  Company Number: SK-DEXPHARM-20221751

PATIENT
  Age: 68 Year
  Sex: Male

DRUGS (3)
  1. UNSPECIFIED INGREDIENT [Suspect]
     Active Substance: UNSPECIFIED INGREDIENT
     Indication: Back pain
     Dosage: INTERLAMINAR EPIDURAL STEROID INJECTION (ESI) OF 4ML MIXTURE OF DEXAMETHASONE 4MG, ROPIVACAINE, A...
     Route: 030
  2. PREGABALIN [Suspect]
     Active Substance: PREGABALIN
  3. ACETAMINOPHEN\TRAMADOL [Suspect]
     Active Substance: ACETAMINOPHEN\TRAMADOL

REACTIONS (1)
  - Arteriovenous fistula [Not Recovered/Not Resolved]
